FAERS Safety Report 13797367 (Version 1)
Quarter: 2017Q3

REPORT INFORMATION
  Report Type: Report from Study
  Country: None (occurrence: US)
  Receive Date: 20170727
  Receipt Date: 20170727
  Transmission Date: 20171127
  Serious: Yes (Hospitalization)
  Sender: FDA-Public Use
  Company Number: US-ABBVIE-17P-163-2049054-00

PATIENT
  Age: 77 Year
  Sex: Female
  Weight: 47.22 kg

DRUGS (1)
  1. CREON [Suspect]
     Active Substance: PANCRELIPASE AMYLASE\PANCRELIPASE LIPASE\PANCRELIPASE PROTEASE
     Indication: PANCREATECTOMY
     Dosage: 2 CAPSULES WITH EACH MEALS AND 1 CAPSULE WITH EACH SNACK.
     Route: 048
     Dates: start: 201308

REACTIONS (3)
  - Knee arthroplasty [Recovering/Resolving]
  - Arthritis infective [Recovering/Resolving]
  - Pancreatectomy [Recovered/Resolved]

NARRATIVE: CASE EVENT DATE: 201701
